FAERS Safety Report 21083535 (Version 2)
Quarter: 2022Q3

REPORT INFORMATION
  Report Type: Spontaneous
  Country: US (occurrence: US)
  Receive Date: 20220714
  Receipt Date: 20220729
  Transmission Date: 20221027
  Serious: Yes (Other)
  Sender: FDA-Public Use
  Company Number: US-TEVA-2022-US-2053923

PATIENT
  Age: 42 Year
  Sex: Male

DRUGS (5)
  1. MYCOPHENOLATE MOFETIL [Suspect]
     Active Substance: MYCOPHENOLATE MOFETIL
     Indication: Erythema elevatum diutinum
     Route: 065
  2. SULFASALAZINE [Suspect]
     Active Substance: SULFASALAZINE
     Indication: Erythema elevatum diutinum
     Route: 065
  3. ADALIMUMAB [Suspect]
     Active Substance: ADALIMUMAB
     Indication: Erythema elevatum diutinum
     Route: 065
  4. DAPSONE [Suspect]
     Active Substance: DAPSONE
     Indication: Erythema elevatum diutinum
     Route: 065
  5. TOFACITINIB [Suspect]
     Active Substance: TOFACITINIB
     Indication: Erythema elevatum diutinum
     Route: 065
     Dates: start: 2019

REACTIONS (2)
  - Lymphomatoid papulosis [Recovering/Resolving]
  - Drug ineffective [Unknown]
